FAERS Safety Report 26131866 (Version 3)
Quarter: 2025Q4

REPORT INFORMATION
  Report Type: Spontaneous
  Country: CN (occurrence: CN)
  Receive Date: 20251208
  Receipt Date: 20251222
  Transmission Date: 20260117
  Serious: Yes (Death, Life-Threatening, Hospitalization, Other)
  Sender: COHERUS
  Company Number: CN-SHANGHAI JUNSHI BIOSCIENCES CO., LTD.-CN2025016796

PATIENT

DRUGS (3)
  1. TORIPALIMAB [Suspect]
     Active Substance: TORIPALIMAB
     Indication: Renal cancer
     Dosage: 240 MG, EVERY 21 DAYS
     Route: 042
     Dates: start: 20251020, end: 20251112
  2. PAZOPANIB [Concomitant]
     Active Substance: PAZOPANIB
     Indication: Renal cancer
     Dosage: TOTAL 2 CYCLES
     Route: 065
  3. PAZOPANIB [Concomitant]
     Active Substance: PAZOPANIB
     Indication: Clear cell renal cell carcinoma
     Dosage: TOTAL 2 CYCLES

REACTIONS (3)
  - Acute hepatic failure [Fatal]
  - Renal failure [Unknown]
  - Upper respiratory tract infection [Unknown]

NARRATIVE: CASE EVENT DATE: 20251130
